FAERS Safety Report 4868020-0 (Version None)
Quarter: 2005Q4

REPORT INFORMATION
  Report Type: 
  Country: None (occurrence: None)
  Receive Date: 20051229
  Receipt Date: 20051226
  Transmission Date: 20060501
  Serious: Yes (Life-Threatening, Hospitalization)
  Sender: FDA-Public Use
  Company Number: BR-BOEHRINGER INGELHEIM PHARMACEUTICALS, INC.-2005-BP-21774BR

PATIENT
  Age: 64 Year
  Sex: Female

DRUGS (1)
  1. MOVATEC TABLETS [Suspect]
     Indication: TENDONITIS
     Route: 048
     Dates: start: 20041101, end: 20041101

REACTIONS (3)
  - COMA [None]
  - INTESTINAL HAEMORRHAGE [None]
  - PERITONITIS [None]
